FAERS Safety Report 8592081-9 (Version None)
Quarter: 2012Q3

REPORT INFORMATION
  Report Type: 
  Country: None (occurrence: None)
  Receive Date: 20120814
  Receipt Date: 20120806
  Transmission Date: 20120928
  Serious: Yes (Hospitalization)
  Sender: FDA-Public Use
  Company Number: TR-VERTEX PHARMACEUTICALS INC.-000000000000000440

PATIENT
  Sex: Male
  Weight: 80 kg

DRUGS (5)
  1. PEGINTERFERON ALFA-2A [Concomitant]
     Indication: HEPATITIS C
  2. PEGINTERFERON ALFA-2A [Concomitant]
     Indication: PANCYTOPENIA
     Route: 058
     Dates: start: 20120210, end: 20120326
  3. INCIVO [Suspect]
     Indication: HEPATITIS C
     Dosage: DOSAGE FORM: TABLET
     Route: 048
     Dates: start: 20120210, end: 20120326
  4. RIBAVIRIN [Concomitant]
     Indication: PANCYTOPENIA
     Route: 048
     Dates: start: 20120210, end: 20120326
  5. RIBAVIRIN [Concomitant]
     Indication: HEPATITIS C

REACTIONS (7)
  - FATIGUE [None]
  - ANAEMIA HAEMOLYTIC AUTOIMMUNE [None]
  - SEPSIS [None]
  - VOMITING [None]
  - PANCYTOPENIA [None]
  - NAUSEA [None]
  - LUNG INFECTION [None]
